FAERS Safety Report 7089467-0 (Version None)
Quarter: 2010Q4

REPORT INFORMATION
  Report Type: 
  Country: None (occurrence: None)
  Receive Date: 20101108
  Receipt Date: 20101101
  Transmission Date: 20110411
  Serious: Yes (Death)
  Sender: FDA-Public Use
  Company Number: US-JNJFOC-20101004488

PATIENT
  Age: 17 Year
  Sex: Female

DRUGS (1)
  1. NUCYNTA [Suspect]
     Indication: ILL-DEFINED DISORDER
     Route: 048

REACTIONS (2)
  - DRUG DIVERSION [None]
  - OVERDOSE [None]
